FAERS Safety Report 10055758 (Version 1)
Quarter: 2014Q2

REPORT INFORMATION
  Report Type: Spontaneous
  Country: US (occurrence: None)
  Receive Date: 20140402
  Receipt Date: 20140402
  Transmission Date: 20141212
  Serious: Yes (Other)
  Sender: FDA-Public Use
  Company Number: None

PATIENT
  Age: 72 Year
  Sex: Female
  Weight: 106 kg

DRUGS (1)
  1. DAPTOMYCIN [Suspect]
     Indication: SEPSIS
     Dosage: 600MG, MWF POST HEMODIALY, INTRAVENOUS
     Route: 042
     Dates: start: 20140314, end: 20140321

REACTIONS (1)
  - Blood creatine phosphokinase increased [None]
